FAERS Safety Report 6748410-1 (Version None)
Quarter: 2010Q2

REPORT INFORMATION
  Report Type: 
  Country: None (occurrence: None)
  Receive Date: 20100527
  Receipt Date: 20100527
  Transmission Date: 20101027
  Serious: No
  Sender: FDA-Public Use
  Company Number: None

PATIENT
  Age: 69 Year
  Sex: Female
  Weight: 63.5036 kg

DRUGS (1)
  1. LISINOPRIL [Suspect]
     Indication: HYPERTENSION
     Dosage: 10MG 1 TAB DAILY
     Dates: start: 20100428, end: 20100511

REACTIONS (4)
  - AGGRESSION [None]
  - COUGH [None]
  - LACRIMATION INCREASED [None]
  - RETCHING [None]
